FAERS Safety Report 9252389 (Version 5)
Quarter: 2014Q1

REPORT INFORMATION
  Report Type: Spontaneous
  Country: IE (occurrence: IE)
  Receive Date: 20130424
  Receipt Date: 20140219
  Transmission Date: 20141002
  Serious: Yes (Death, Hospitalization, Other)
  Sender: FDA-Public Use
  Company Number: PHFR2013IE002335

PATIENT
  Age: 82 Year
  Sex: Male
  Weight: 73 kg

DRUGS (204)
  1. CLOZARIL [Suspect]
     Indication: SCHIZOPHRENIA
     Dosage: UNK UKN, UNK
     Route: 048
     Dates: start: 20010701
  2. CLOZARIL [Suspect]
     Dosage: 250 MG, (150 MG+ 100 MG) DIVIDED DOSE
     Route: 048
     Dates: start: 20130314
  3. CLOZARIL [Suspect]
     Dosage: 250 MG, (150 MG+ 100 MG) DIVIDED DOSE
     Route: 048
     Dates: start: 20130315
  4. CLOZARIL [Suspect]
     Dosage: 250 MG, (150 MG+ 100 MG) DIVIDED DOSE
     Route: 048
     Dates: start: 20130316
  5. CLOZARIL [Suspect]
     Dosage: 250 MG, (150 MG+ 100 MG) DIVIDED DOSE
     Route: 048
     Dates: start: 20130317
  6. CLOZARIL [Suspect]
     Dosage: 250 MG, (150 MG+ 100 MG) DIVIDED DOSE
     Route: 048
     Dates: start: 20130318
  7. CLOZARIL [Suspect]
     Dosage: 250 MG, (150 MG+ 100 MG) DIVIDED DOSE
     Route: 048
     Dates: start: 20130319
  8. CLOZARIL [Suspect]
     Dosage: 250 MG, (150 MG+ 100 MG) DIVIDED DOSE
     Route: 048
     Dates: start: 20130320
  9. CLOZARIL [Suspect]
     Dosage: 250 MG, (150 MG+ 100 MG) DIVIDED DOSE
     Route: 048
     Dates: start: 20130321
  10. CLOZARIL [Suspect]
     Dosage: 250 MG, (150 MG+ 100 MG) DIVIDED DOSE
     Route: 048
     Dates: start: 20130322
  11. CLOZARIL [Suspect]
     Dosage: 250 MG, (150 MG+ 100 MG) DIVIDED DOSE
     Route: 048
     Dates: start: 20130323
  12. CLOZARIL [Suspect]
     Dosage: 250 MG, (150 MG+ 100 MG) DIVIDED DOSE
     Route: 048
     Dates: start: 20130324
  13. CLOZARIL [Suspect]
     Dosage: 250 MG, (150 MG+ 100 MG) DIVIDED DOSE
     Route: 048
     Dates: start: 20130325
  14. CLOZARIL [Suspect]
     Dosage: 250 MG, (150 MG+ 100 MG) DIVIDED DOSE
     Route: 048
     Dates: start: 20130326
  15. CLOZARIL [Suspect]
     Dosage: 250 MG, (150 MG+ 100 MG) DIVIDED DOSE
     Route: 048
     Dates: start: 20130327
  16. CLOZARIL [Suspect]
     Dosage: 250 MG, (150 MG+ 100 MG) DIVIDED DOSE
     Route: 048
     Dates: start: 20130328
  17. CLOZARIL [Suspect]
     Dosage: 250 MG, (150 MG+ 100 MG) DIVIDED DOSE
     Route: 048
     Dates: start: 20130329
  18. CLOZARIL [Suspect]
     Dosage: 250 MG, (150 MG+ 100 MG) DIVIDED DOSE
     Route: 048
     Dates: start: 20130402
  19. CLOZARIL [Suspect]
     Dosage: 250 MG, (150 MG+ 100 MG) DIVIDED DOSE
     Route: 048
     Dates: start: 20130403
  20. CLOZARIL [Suspect]
     Dosage: 250 MG, (150 MG+ 100 MG) DIVIDED DOSE
     Route: 048
     Dates: start: 20130404
  21. EPILIM [Concomitant]
     Indication: AFFECTIVE DISORDER
     Dosage: 700 MG, QD ( 200 MG IN MORNING AND 500 MG IN NIGHT)
     Route: 048
  22. PRAVASTATIN [Concomitant]
     Indication: HYPERCHOLESTEROLAEMIA
     Dosage: 10 MG, QD
     Route: 048
     Dates: start: 20130314
  23. PRAVASTATIN [Concomitant]
     Dosage: 10 MG, QD
     Route: 048
     Dates: start: 20130315
  24. PRAVASTATIN [Concomitant]
     Dosage: 10 MG, QD
     Route: 048
     Dates: start: 20130316
  25. PRAVASTATIN [Concomitant]
     Dosage: 10 MG, QD
     Route: 048
     Dates: start: 20130317
  26. PRAVASTATIN [Concomitant]
     Dosage: 10 MG, QD
     Route: 048
     Dates: start: 20130318
  27. PRAVASTATIN [Concomitant]
     Dosage: 10 MG, QD
     Route: 048
     Dates: start: 20130319
  28. PRAVASTATIN [Concomitant]
     Dosage: 10 MG, QD
     Route: 048
     Dates: start: 20130320
  29. PRAVASTATIN [Concomitant]
     Dosage: 10 MG, QD
     Route: 048
     Dates: start: 20130321
  30. PRAVASTATIN [Concomitant]
     Dosage: 10 MG, QD
     Route: 048
     Dates: start: 20130322
  31. PRAVASTATIN [Concomitant]
     Dosage: 10 MG, QD
     Route: 048
     Dates: start: 20130323
  32. PRAVASTATIN [Concomitant]
     Dosage: 10 MG, QD
     Route: 048
     Dates: start: 20130324
  33. PRAVASTATIN [Concomitant]
     Dosage: 10 MG, QD
     Route: 048
     Dates: start: 20130325
  34. PRAVASTATIN [Concomitant]
     Dosage: 10 MG, QD
     Route: 048
     Dates: start: 20130326
  35. PRAVASTATIN [Concomitant]
     Dosage: 10 MG, QD
     Route: 048
     Dates: start: 20130327
  36. PRAVASTATIN [Concomitant]
     Dosage: 10 MG, QD
     Route: 048
     Dates: start: 20130328
  37. PRAVASTATIN [Concomitant]
     Dosage: 10 MG, QD
     Route: 048
     Dates: start: 20130329
  38. PRAVASTATIN [Concomitant]
     Dosage: 10 MG, QD
     Route: 048
     Dates: start: 20130402
  39. PRAVASTATIN [Concomitant]
     Dosage: 10 MG, QD
     Route: 048
     Dates: start: 20130403
  40. PRAVASTATIN [Concomitant]
     Dosage: 10 MG, QD
     Route: 048
     Dates: start: 20130404
  41. ESOMEPRAZOLE [Concomitant]
     Indication: PEPTIC ULCER
     Dosage: 40 MG, QD
     Route: 048
     Dates: start: 20130314
  42. ESOMEPRAZOLE [Concomitant]
     Dosage: 40 MG, QD
     Route: 048
     Dates: start: 20130315
  43. ESOMEPRAZOLE [Concomitant]
     Dosage: 40 MG, QD
     Route: 048
     Dates: start: 20130316
  44. ESOMEPRAZOLE [Concomitant]
     Dosage: 40 MG, QD
     Route: 048
     Dates: start: 20130317
  45. ESOMEPRAZOLE [Concomitant]
     Dosage: 40 MG, QD
     Route: 048
     Dates: start: 20130318
  46. ESOMEPRAZOLE [Concomitant]
     Dosage: 40 MG, QD
     Route: 048
     Dates: start: 20130319
  47. ESOMEPRAZOLE [Concomitant]
     Dosage: 40 MG, QD
     Route: 048
     Dates: start: 20130320
  48. ESOMEPRAZOLE [Concomitant]
     Dosage: 40 MG, QD
     Route: 048
     Dates: start: 20130321
  49. ESOMEPRAZOLE [Concomitant]
     Dosage: 40 MG, QD
     Route: 048
     Dates: start: 20130322
  50. ESOMEPRAZOLE [Concomitant]
     Dosage: 40 MG, QD
     Route: 048
     Dates: start: 20130323
  51. ESOMEPRAZOLE [Concomitant]
     Dosage: 40 MG, QD
     Route: 048
     Dates: start: 20130324
  52. ESOMEPRAZOLE [Concomitant]
     Dosage: 40 MG, QD
     Route: 048
     Dates: start: 20130325
  53. ESOMEPRAZOLE [Concomitant]
     Dosage: 40 MG, QD
     Route: 048
     Dates: start: 20130326
  54. ESOMEPRAZOLE [Concomitant]
     Dosage: 40 MG, QD
     Route: 048
     Dates: start: 20130327
  55. ESOMEPRAZOLE [Concomitant]
     Dosage: 40 MG, QD
     Route: 048
     Dates: start: 20130328
  56. ESOMEPRAZOLE [Concomitant]
     Dosage: 40 MG, QD
     Route: 048
     Dates: start: 20130329
  57. ESOMEPRAZOLE [Concomitant]
     Dosage: 40 MG, QD
     Route: 048
     Dates: start: 20130402
  58. ESOMEPRAZOLE [Concomitant]
     Dosage: 40 MG, QD
     Route: 048
     Dates: start: 20130403
  59. ESOMEPRAZOLE [Concomitant]
     Dosage: 40 MG, QD
     Route: 048
     Dates: start: 20130404
  60. MIDODRINE [Concomitant]
     Indication: CARDIAC FAILURE
     Dosage: 2.5 MG, QD
     Route: 048
  61. MIDODRINE [Concomitant]
     Dosage: 2.5 MG, UNK
     Route: 048
     Dates: start: 20130314
  62. FUROSEMIDE [Concomitant]
     Indication: CARDIAC FAILURE
     Dosage: 20 MG, QD
     Route: 048
     Dates: start: 20130314
  63. FUROSEMIDE [Concomitant]
     Dosage: 40 MG, QD
     Route: 048
     Dates: start: 20130403
  64. SERETIDE [Concomitant]
     Indication: LUNG DISORDER
     Dosage: 500 UG, BID
     Route: 055
     Dates: start: 20130314
  65. SERETIDE [Concomitant]
     Dosage: 500 UG, BID
     Route: 055
     Dates: start: 20130315
  66. SERETIDE [Concomitant]
     Dosage: 500 UG, BID
     Route: 055
     Dates: start: 20130316
  67. SERETIDE [Concomitant]
     Dosage: 500 UG, BID
     Route: 055
     Dates: start: 20130317
  68. SERETIDE [Concomitant]
     Dosage: 500 UG, BID
     Route: 055
     Dates: start: 20130318
  69. SERETIDE [Concomitant]
     Dosage: 500 UG, BID
     Route: 055
     Dates: start: 20130319
  70. SERETIDE [Concomitant]
     Dosage: 500 UG, BID
     Route: 055
     Dates: start: 20130320
  71. SERETIDE [Concomitant]
     Dosage: 500 UG, BID
     Route: 055
     Dates: start: 20130321
  72. SERETIDE [Concomitant]
     Dosage: 500 UG, BID
     Route: 055
     Dates: start: 20130322
  73. SERETIDE [Concomitant]
     Dosage: 500 UG, BID
     Route: 055
     Dates: start: 20130323
  74. SERETIDE [Concomitant]
     Dosage: 500 UG, BID
     Route: 055
     Dates: start: 20130324
  75. SERETIDE [Concomitant]
     Dosage: 500 UG, BID
     Route: 055
     Dates: start: 20130325
  76. SERETIDE [Concomitant]
     Dosage: 500 UG, BID
     Route: 055
     Dates: start: 20130326
  77. SERETIDE [Concomitant]
     Dosage: 500 UG, BID
     Route: 055
     Dates: start: 20130327
  78. SERETIDE [Concomitant]
     Dosage: 500 UG, BID
     Route: 055
     Dates: start: 20130328
  79. SERETIDE [Concomitant]
     Dosage: 500 UG, BID
     Route: 055
     Dates: start: 20130329
  80. SERETIDE [Concomitant]
     Dosage: 500 UG, BID
     Route: 055
     Dates: start: 20130402
  81. SERETIDE [Concomitant]
     Dosage: 500 UG, BID
     Route: 055
     Dates: start: 20130403
  82. SERETIDE [Concomitant]
     Dosage: 500 UG, BID
     Route: 055
     Dates: start: 20130404
  83. DETRUSITOL [Concomitant]
     Indication: URINARY INCONTINENCE
     Dosage: 0.5 MG, QD
     Route: 048
  84. AUGMENTINE [Concomitant]
     Indication: PNEUMONIA
     Dosage: 375 MG, QD
     Route: 048
     Dates: start: 20130314
  85. AUGMENTINE [Concomitant]
     Dosage: 375 MG, QD
     Route: 048
     Dates: start: 20130315
  86. AUGMENTINE [Concomitant]
     Dosage: 375 MG, QD
     Route: 048
     Dates: start: 20130316
  87. AUGMENTINE [Concomitant]
     Dosage: 375 MG, QD
     Route: 048
     Dates: start: 20130317
  88. AUGMENTINE [Concomitant]
     Dosage: 375 MG, QD
     Route: 048
     Dates: start: 20130318
  89. AUGMENTINE [Concomitant]
     Dosage: 375 MG, QD
     Route: 048
     Dates: start: 20130319
  90. AUGMENTINE [Concomitant]
     Dosage: 375 MG, QD
     Route: 048
     Dates: start: 20130320
  91. AUGMENTINE [Concomitant]
     Dosage: 375 MG, QD
     Route: 048
     Dates: start: 20130321
  92. AUGMENTINE [Concomitant]
     Dosage: 375 MG, QD
     Route: 048
     Dates: start: 20130322
  93. AUGMENTINE [Concomitant]
     Dosage: 375 MG, QD
     Route: 048
     Dates: start: 20130323
  94. AUGMENTINE [Concomitant]
     Dosage: 375 MG, QD
     Route: 048
     Dates: start: 20130324
  95. AUGMENTINE [Concomitant]
     Dosage: 375 MG, QD
     Route: 048
     Dates: start: 20130325
  96. AUGMENTINE [Concomitant]
     Dosage: 375 MG, QD
     Route: 048
     Dates: start: 20130326
  97. AUGMENTINE [Concomitant]
     Dosage: 375 MG, QD
     Route: 048
     Dates: start: 20130327
  98. AUGMENTINE [Concomitant]
     Dosage: 375 MG, QD
     Route: 048
     Dates: start: 20130328
  99. AUGMENTINE [Concomitant]
     Dosage: 375 MG, QD
     Route: 048
     Dates: start: 20130329
  100. AUGMENTINE [Concomitant]
     Dosage: 375 MG, QD
     Route: 048
     Dates: start: 20130402
  101. AUGMENTINE [Concomitant]
     Dosage: 375 MG, QD
     Route: 048
     Dates: start: 20130403
  102. AUGMENTINE [Concomitant]
     Dosage: 625 MG, TID
     Route: 048
     Dates: start: 20130403
  103. AUGMENTINE [Concomitant]
     Dosage: 375 MG, QD
     Route: 048
     Dates: start: 20130404, end: 20130412
  104. ASPIRIN [Concomitant]
     Indication: CARDIAC FAILURE
     Dosage: 75 MG, QD
     Route: 048
     Dates: start: 20130314
  105. ASPIRIN [Concomitant]
     Dosage: 75 MG, QD
     Route: 048
     Dates: start: 20130315
  106. ASPIRIN [Concomitant]
     Dosage: 75 MG, QD
     Route: 048
     Dates: start: 20130316
  107. ASPIRIN [Concomitant]
     Dosage: 75 MG, QD
     Route: 048
     Dates: start: 20130317
  108. ASPIRIN [Concomitant]
     Dosage: 75 MG, QD
     Route: 048
     Dates: start: 20130318
  109. ASPIRIN [Concomitant]
     Dosage: 75 MG, QD
     Route: 048
     Dates: start: 20130319
  110. ASPIRIN [Concomitant]
     Dosage: 75 MG, QD
     Route: 048
     Dates: start: 20130320
  111. ASPIRIN [Concomitant]
     Dosage: 75 MG, QD
     Route: 048
     Dates: start: 20130321
  112. ASPIRIN [Concomitant]
     Dosage: 75 MG, QD
     Route: 048
     Dates: start: 20130322
  113. ASPIRIN [Concomitant]
     Dosage: 75 MG, QD
     Route: 048
     Dates: start: 20130323
  114. ASPIRIN [Concomitant]
     Dosage: 75 MG, QD
     Route: 048
     Dates: start: 20130324
  115. ASPIRIN [Concomitant]
     Dosage: 75 MG, QD
     Route: 048
     Dates: start: 20130325
  116. ASPIRIN [Concomitant]
     Dosage: 75 MG, QD
     Route: 048
     Dates: start: 20130326
  117. ASPIRIN [Concomitant]
     Dosage: 75 MG, QD
     Route: 048
     Dates: start: 20130327
  118. ASPIRIN [Concomitant]
     Dosage: 75 MG, QD
     Route: 048
     Dates: start: 20130328
  119. ASPIRIN [Concomitant]
     Dosage: 75 MG, QD
     Route: 048
     Dates: start: 20130329
  120. ASPIRIN [Concomitant]
     Dosage: 75 MG, QD
     Route: 048
     Dates: start: 20130402
  121. ASPIRIN [Concomitant]
     Dosage: 75 MG, QD
     Route: 048
     Dates: start: 20130403
  122. ASPIRIN [Concomitant]
     Dosage: 75 MG, QD
     Route: 048
     Dates: start: 20130404
  123. MOVICOL [Concomitant]
     Indication: CONSTIPATION
     Dosage: ONE SACHET DAILY
     Route: 048
     Dates: start: 20130314
  124. MOVICOL [Concomitant]
     Dosage: ONE SACHET DAILY
     Route: 048
     Dates: start: 20130315
  125. MOVICOL [Concomitant]
     Dosage: ONE SACHET DAILY
     Route: 048
     Dates: start: 20130316
  126. MOVICOL [Concomitant]
     Dosage: ONE SACHET DAILY
     Route: 048
     Dates: start: 20130317
  127. MOVICOL [Concomitant]
     Dosage: ONE SACHET DAILY
     Route: 048
     Dates: start: 20130318
  128. MOVICOL [Concomitant]
     Dosage: ONE SACHET DAILY
     Route: 048
     Dates: start: 20130319
  129. MOVICOL [Concomitant]
     Dosage: ONE SACHET DAILY
     Route: 048
     Dates: start: 20130320
  130. MOVICOL [Concomitant]
     Dosage: ONE SACHET DAILY
     Route: 048
     Dates: start: 20130321
  131. MOVICOL [Concomitant]
     Dosage: ONE SACHET DAILY
     Route: 048
     Dates: start: 20130322
  132. MOVICOL [Concomitant]
     Dosage: ONE SACHET DAILY
     Route: 048
     Dates: start: 20130323
  133. MOVICOL [Concomitant]
     Dosage: ONE SACHET DAILY
     Route: 048
     Dates: start: 20130324
  134. MOVICOL [Concomitant]
     Dosage: ONE SACHET DAILY
     Route: 048
     Dates: start: 20130325
  135. MOVICOL [Concomitant]
     Dosage: ONE SACHET DAILY
     Route: 048
     Dates: start: 20130326
  136. MOVICOL [Concomitant]
     Dosage: ONE SACHET DAILY
     Route: 048
     Dates: start: 20130327
  137. MOVICOL [Concomitant]
     Dosage: ONE SACHET DAILY
     Route: 048
     Dates: start: 20130328
  138. MOVICOL [Concomitant]
     Dosage: ONE SACHET DAILY
     Route: 048
     Dates: start: 20130329
  139. MOVICOL [Concomitant]
     Dosage: ONE SACHET DAILY
     Dates: start: 20130404
  140. AVODART [Concomitant]
     Dosage: 0.5 MG, DAILY
     Route: 048
     Dates: start: 20130314
  141. AVODART [Concomitant]
     Dosage: 0.5 MG, DAILY
     Route: 048
     Dates: start: 20130315
  142. AVODART [Concomitant]
     Dosage: 0.5 MG, DAILY
     Route: 048
     Dates: start: 20130316
  143. AVODART [Concomitant]
     Dosage: 0.5 MG, DAILY
     Route: 048
     Dates: start: 20130317
  144. AVODART [Concomitant]
     Dosage: 0.5 MG, DAILY
     Route: 048
     Dates: start: 20130318
  145. AVODART [Concomitant]
     Dosage: 0.5 MG, DAILY
     Route: 048
     Dates: start: 20130319
  146. AVODART [Concomitant]
     Dosage: 0.5 MG, DAILY
     Route: 048
     Dates: start: 20130320
  147. AVODART [Concomitant]
     Dosage: 0.5 MG, DAILY
     Route: 048
     Dates: start: 20130321
  148. AVODART [Concomitant]
     Dosage: 0.5 MG, DAILY
     Route: 048
     Dates: start: 20130322
  149. AVODART [Concomitant]
     Dosage: 0.5 MG, DAILY
     Route: 048
     Dates: start: 20130323
  150. AVODART [Concomitant]
     Dosage: 0.5 MG, DAILY
     Route: 048
     Dates: start: 20130324
  151. AVODART [Concomitant]
     Dosage: 0.5 MG, DAILY
     Route: 048
     Dates: start: 20130325
  152. AVODART [Concomitant]
     Dosage: 0.5 MG, DAILY
     Route: 048
     Dates: start: 20130326
  153. AVODART [Concomitant]
     Dosage: 0.5 MG, DAILY
     Route: 048
     Dates: start: 20130327
  154. AVODART [Concomitant]
     Dosage: 0.5 MG, DAILY
     Route: 048
     Dates: start: 20130328
  155. AVODART [Concomitant]
     Dosage: 0.5 MG, DAILY
     Route: 048
     Dates: start: 20130329
  156. AVODART [Concomitant]
     Dosage: 0.5 MG, DAILY
     Route: 048
     Dates: start: 20130402
  157. AVODART [Concomitant]
     Dosage: 0.5 MG, DAILY
     Route: 048
     Dates: start: 20130403
  158. AVODART [Concomitant]
     Dosage: 0.5 MG, DAILY
     Route: 048
     Dates: start: 20130404
  159. SODIUM VALPROATE [Concomitant]
     Dosage: 200 MG, UNK
     Route: 048
     Dates: start: 20130314
  160. SODIUM VALPROATE [Concomitant]
     Dosage: 700 MG, (200 MG + 500 MG)DIVIDED DOSE
     Route: 048
     Dates: start: 20130315
  161. SODIUM VALPROATE [Concomitant]
     Dosage: 700 MG, (200 MG + 500 MG)DIVIDED DOSE
     Route: 048
     Dates: start: 20130316
  162. SODIUM VALPROATE [Concomitant]
     Dosage: 700 MG, (200 MG + 500 MG)DIVIDED DOSE
     Route: 048
     Dates: start: 20130317
  163. SODIUM VALPROATE [Concomitant]
     Dosage: 700 MG, (200 MG + 500 MG)DIVIDED DOSE
     Route: 048
     Dates: start: 20130318
  164. SODIUM VALPROATE [Concomitant]
     Dosage: 700 MG, (200 MG + 500 MG)DIVIDED DOSE
     Route: 048
     Dates: start: 20130319
  165. SODIUM VALPROATE [Concomitant]
     Dosage: 700 MG, (200 MG + 500 MG)DIVIDED DOSE
     Route: 048
     Dates: start: 20130320
  166. SODIUM VALPROATE [Concomitant]
     Dosage: 700 MG, (200 MG + 500 MG)DIVIDED DOSE
     Route: 048
     Dates: start: 20130321
  167. SODIUM VALPROATE [Concomitant]
     Dosage: 700 MG, (200 MG + 500 MG)DIVIDED DOSE
     Route: 048
     Dates: start: 20130322
  168. SODIUM VALPROATE [Concomitant]
     Dosage: 700 MG, (200 MG + 500 MG)DIVIDED DOSE
     Route: 048
     Dates: start: 20130323
  169. SODIUM VALPROATE [Concomitant]
     Dosage: 700 MG, (200 MG + 500 MG)DIVIDED DOSE
     Route: 048
     Dates: start: 20130324
  170. SODIUM VALPROATE [Concomitant]
     Dosage: 700 MG, (200 MG + 500 MG)DIVIDED DOSE
     Route: 048
     Dates: start: 20130325
  171. SODIUM VALPROATE [Concomitant]
     Dosage: 700 MG, (200 MG + 500 MG)DIVIDED DOSE
     Route: 048
     Dates: start: 20130326
  172. SODIUM VALPROATE [Concomitant]
     Dosage: 700 MG, (200 MG + 500 MG)DIVIDED DOSE
     Route: 048
     Dates: start: 20130327
  173. SODIUM VALPROATE [Concomitant]
     Dosage: 700 MG, (200 MG + 500 MG)DIVIDED DOSE
     Route: 048
     Dates: start: 20130328
  174. SODIUM VALPROATE [Concomitant]
     Dosage: 700 MG, (200 MG + 500 MG)DIVIDED DOSE
     Route: 048
     Dates: start: 20130329
  175. SODIUM VALPROATE [Concomitant]
     Dosage: 700 MG, (200 MG + 500 MG)DIVIDED DOSE
     Route: 048
     Dates: start: 20130402
  176. SODIUM VALPROATE [Concomitant]
     Dosage: 700 MG, (200 MG + 500 MG)DIVIDED DOSE
     Route: 048
     Dates: start: 20130403
  177. SODIUM VALPROATE [Concomitant]
     Dosage: 700 MG, (200 MG + 500 MG)DIVIDED DOSE
     Route: 048
     Dates: start: 20130404
  178. SLOW K [Concomitant]
     Dosage: UNK UKN, TID
     Route: 048
     Dates: start: 20130403
  179. SLOW K [Concomitant]
     Dosage: UNK UKN, TID
     Dates: start: 20130404, end: 20130406
  180. PARACETAMOL [Concomitant]
     Dosage: 1 G, QD
     Route: 048
     Dates: start: 20130314
  181. KWELLS [Concomitant]
     Dosage: UNK UKN, BID
     Route: 048
     Dates: start: 20130314
  182. KWELLS [Concomitant]
     Dosage: UNK UKN, BID
     Route: 048
     Dates: start: 20130315
  183. KWELLS [Concomitant]
     Dosage: UNK UKN, BID
     Route: 048
     Dates: start: 20130316
  184. KWELLS [Concomitant]
     Dosage: UNK UKN, BID
     Route: 048
     Dates: start: 20130317
  185. KWELLS [Concomitant]
     Dosage: UNK UKN, BID
     Route: 048
     Dates: start: 20130318
  186. KWELLS [Concomitant]
     Dosage: UNK UKN, BID
     Route: 048
     Dates: start: 20130319
  187. KWELLS [Concomitant]
     Dosage: UNK UKN, BID
     Route: 048
     Dates: start: 20130320
  188. KWELLS [Concomitant]
     Dosage: UNK UKN, BID
     Route: 048
     Dates: start: 20130321
  189. KWELLS [Concomitant]
     Dosage: UNK UKN, BID
     Route: 048
     Dates: start: 20130322
  190. KWELLS [Concomitant]
     Dosage: UNK UKN, BID
     Route: 048
     Dates: start: 20130323
  191. KWELLS [Concomitant]
     Dosage: UNK UKN, BID
     Route: 048
     Dates: start: 20130324
  192. KWELLS [Concomitant]
     Dosage: UNK UKN, BID
     Route: 048
     Dates: start: 20130325
  193. KWELLS [Concomitant]
     Dosage: UNK UKN, BID
     Route: 048
     Dates: start: 20130326
  194. KWELLS [Concomitant]
     Dosage: UNK UKN, BID
     Route: 048
     Dates: start: 20130327
  195. KWELLS [Concomitant]
     Dosage: UNK UKN, BID
     Route: 048
     Dates: start: 20130328
  196. KWELLS [Concomitant]
     Dosage: UNK UKN, BID
     Route: 048
     Dates: start: 20130329
  197. KWELLS [Concomitant]
     Dosage: UNK UKN, BID
     Route: 048
     Dates: start: 20130403
  198. KWELLS [Concomitant]
     Dosage: UNK UKN, BID
     Route: 048
     Dates: start: 20130404
  199. KLACID [Concomitant]
     Dosage: 500 MG, BID
     Route: 048
     Dates: start: 20130314
  200. PREDNISOLONE [Concomitant]
     Dosage: 25 MG, QD
     Route: 048
     Dates: start: 20130314
  201. PREDNISOLONE [Concomitant]
     Dosage: 61 MG, QD
     Route: 048
     Dates: start: 20130326
  202. OMNEXEL [Concomitant]
     Dosage: 0.4 MG, QD
     Route: 048
     Dates: start: 20130322
  203. SUPRAX//CEFIXIME TRIHYDRATE [Concomitant]
     Dosage: 200 MG, QD
     Route: 048
     Dates: start: 20130326
  204. COMBIVENT [Concomitant]
     Dosage: UNK
     Dates: start: 20130326

REACTIONS (14)
  - Cardiac failure [Fatal]
  - Renal failure [Fatal]
  - Respiratory failure [Fatal]
  - Pneumonia [Not Recovered/Not Resolved]
  - Blood creatinine increased [Not Recovered/Not Resolved]
  - C-reactive protein increased [Not Recovered/Not Resolved]
  - Blood urea increased [Not Recovered/Not Resolved]
  - Chest discomfort [Unknown]
  - Wheezing [Unknown]
  - Dyspnoea [Unknown]
  - Red blood cell count decreased [Unknown]
  - White blood cell count increased [Unknown]
  - Neutrophil count increased [Unknown]
  - Haemoglobin decreased [Unknown]
